FAERS Safety Report 9551298 (Version 1)
Quarter: 2013Q3

REPORT INFORMATION
  Report Type: Spontaneous
  Country: US (occurrence: US)
  Receive Date: 20130925
  Receipt Date: 20130925
  Transmission Date: 20140515
  Serious: Yes (Hospitalization)
  Sender: FDA-Public Use
  Company Number: US-AMGEN-USASP2013066964

PATIENT
  Age: 59 Year
  Sex: Female

DRUGS (10)
  1. ENBREL [Suspect]
     Indication: PRODUCT USED FOR UNKNOWN INDICATION
     Dosage: 50 MG, ONCE A WEEK
     Route: 058
  2. PREDNISONE [Concomitant]
     Dosage: 1 MG, UNK
  3. LIPITOR [Concomitant]
     Dosage: 10 MG, UNK
  4. COZAAR [Concomitant]
     Dosage: 25 MG, UNK
  5. GLIMEPIRIDE [Concomitant]
     Dosage: 1 MG, UNK
  6. GABAPENTIN [Concomitant]
     Dosage: 100 MG, UNK
  7. METFORMIN [Concomitant]
     Dosage: 500 MG, UNK
  8. FLUTICASONE [Concomitant]
     Dosage: 50 MUG, UNK
  9. FISH OIL [Concomitant]
     Dosage: UNK
  10. MULTIVITAMIN FOR WOMEN [Concomitant]
     Dosage: UNK

REACTIONS (2)
  - Bursitis infective [Unknown]
  - Cellulitis [Unknown]
